FAERS Safety Report 15665522 (Version 2)
Quarter: 2018Q4

REPORT INFORMATION
  Report Type: Spontaneous
  Country: FR (occurrence: FR)
  Receive Date: 20181128
  Receipt Date: 20181213
  Transmission Date: 20190205
  Serious: Yes (Other)
  Sender: FDA-Public Use
  Company Number: FR-LPDUSPRD-20182200

PATIENT
  Sex: Female

DRUGS (1)
  1. FERINJECT [Suspect]
     Active Substance: FERRIC CARBOXYMALTOSE
     Dosage: 1000 MG (20 ML)
     Route: 065

REACTIONS (5)
  - Administration site pain [Unknown]
  - Surgery [Unknown]
  - Neuralgia [Not Recovered/Not Resolved]
  - Administration site extravasation [Unknown]
  - Administration site discolouration [Unknown]

NARRATIVE: CASE EVENT DATE: 20171126
